FAERS Safety Report 5046029-4 (Version None)
Quarter: 2006Q3

REPORT INFORMATION
  Report Type: 
  Country: None (occurrence: None)
  Receive Date: 20060710
  Receipt Date: 20060630
  Transmission Date: 20061208
  Serious: Yes (Other)
  Sender: FDA-Public Use
  Company Number: IE-GILEAD-2006-0009825

PATIENT
  Age: 17 Year
  Sex: Female
  Weight: 37 kg

DRUGS (1)
  1. TRUVADA [Suspect]
     Dates: start: 20050705

REACTIONS (2)
  - HYPERTENSION [None]
  - UNDERWEIGHT [None]
